FAERS Safety Report 6540353-1 (Version None)
Quarter: 2010Q1

REPORT INFORMATION
  Report Type: 
  Country: None (occurrence: None)
  Receive Date: 20100112
  Receipt Date: 20091228
  Transmission Date: 20100710
  Serious: Yes (Other)
  Sender: FDA-Public Use
  Company Number: 2006US002616

PATIENT
  Age: 56 Year
  Sex: Male
  Weight: 70 kg

DRUGS (7)
  1. PROGRAF [Suspect]
     Indication: LIVER TRANSPLANT
     Dosage: 1 MG, BID, ORAL
     Route: 048
     Dates: start: 20030201
  2. PROCRIT [Suspect]
     Indication: REFRACTORY ANAEMIA
     Dosage: 40000 IU, WEEKLY, SUBCUTANEOUS
     Route: 058
     Dates: start: 20050901, end: 20051201
  3. NEORAL [Concomitant]
  4. CELLCEPT [Concomitant]
  5. PREDNISONE [Concomitant]
  6. PEG-INTRON [Concomitant]
  7. RIBAVIRIN [Concomitant]

REACTIONS (5)
  - APLASIA PURE RED CELL [None]
  - BONE MARROW FAILURE [None]
  - DRUG INEFFECTIVE [None]
  - ERYTHROPOIESIS ABNORMAL [None]
  - HEPATITIS C [None]
